FAERS Safety Report 4422068-9 (Version None)
Quarter: 2004Q3

REPORT INFORMATION
  Report Type: 
  Country: None (occurrence: None)
  Receive Date: 20040806
  Receipt Date: 20040721
  Transmission Date: 20050211
  Serious: Yes (Hospitalization)
  Sender: FDA-Public Use
  Company Number: 200094

PATIENT
  Age: 57 Year
  Sex: Male
  Weight: 82.5547 kg

DRUGS (8)
  1. AVONEX [Suspect]
     Indication: MULTIPLE SCLEROSIS
     Dosage: 30 MCG QW; IM
     Route: 030
     Dates: start: 20020207, end: 20031101
  2. AVONEX [Suspect]
     Indication: MULTIPLE SCLEROSIS
     Dosage: 30 MCG QW; IM
     Route: 030
     Dates: start: 20031101
  3. PLAVIX [Concomitant]
  4. ASPIRIN [Concomitant]
  5. REGLAN [Concomitant]
  6. NEXIUM [Concomitant]
  7. LIPITOR [Concomitant]
  8. MULTI-VITAMINS [Concomitant]

REACTIONS (11)
  - ACTIVATED PARTIAL THROMBOPLASTIN TIME PROLONGED [None]
  - ACUTE CORONARY SYNDROME [None]
  - CARDIOMEGALY [None]
  - CHEST DISCOMFORT [None]
  - CHEST PAIN [None]
  - CHRONIC OBSTRUCTIVE AIRWAYS DISEASE [None]
  - CORONARY ARTERY OCCLUSION [None]
  - CREATINE PHOSPHOKINASE DECREASED [None]
  - INTERNATIONAL NORMALISED RATIO DECREASED [None]
  - POST PROCEDURAL COMPLICATION [None]
  - SPINAL COMPRESSION FRACTURE [None]
